FAERS Safety Report 8914320 (Version 1)
Quarter: 2012Q4

REPORT INFORMATION
  Report Type: 
  Country: IN (occurrence: IN)
  Receive Date: 20121119
  Receipt Date: 20121119
  Transmission Date: 20130627
  Serious: Yes (Hospitalization, Disabling)
  Sender: FDA-Public Use
  Company Number: IN-SANOFI-AVENTIS-2012SA078546

PATIENT
  Sex: Male
  Weight: 90 kg

DRUGS (3)
  1. JEVTANA [Suspect]
     Indication: HORMONE-REFRACTORY PROSTATE CANCER
     Route: 042
     Dates: start: 20120811
  2. JEVTANA [Suspect]
     Indication: HORMONE-REFRACTORY PROSTATE CANCER
     Route: 042
     Dates: start: 20120909
  3. CORTICOSTEROID NOS [Concomitant]
     Route: 048
     Dates: start: 20120811, end: 20121018

REACTIONS (5)
  - Hyponatraemia [Recovering/Resolving]
  - Asthenia [Recovering/Resolving]
  - Somnolence [Recovering/Resolving]
  - Muscle atrophy [Recovering/Resolving]
  - Pancytopenia [Recovering/Resolving]
